FAERS Safety Report 21531594 (Version 1)
Quarter: 2022Q4

REPORT INFORMATION
  Report Type: Spontaneous
  Country: US (occurrence: None)
  Receive Date: 20221028
  Receipt Date: 20221028
  Transmission Date: 20230113
  Serious: Yes (Death)
  Sender: FDA-Public Use
  Company Number: None

PATIENT
  Age: 36 Year
  Sex: Male
  Weight: 66.41 kg

DRUGS (22)
  1. WELIREG [Suspect]
     Active Substance: BELZUTIFAN
     Dosage: FREQUENCY : DAILY;?
     Route: 048
  2. ACETAMINOPHEN [Concomitant]
     Active Substance: ACETAMINOPHEN
  3. ALBUTEROL [Concomitant]
  4. CETIRIZINE HYDROCHLORIDE [Concomitant]
     Active Substance: CETIRIZINE HYDROCHLORIDE
  5. COLACE [Concomitant]
     Active Substance: DOCUSATE SODIUM
  6. DEXTROSE [Concomitant]
     Active Substance: DEXTROSE
  7. DOXYCYCLINE [Concomitant]
     Active Substance: DOXYCYCLINE
  8. DULCOLAX [Concomitant]
  9. ENOXAPARIN [Concomitant]
     Active Substance: ENOXAPARIN
  10. GLUCAGON [Concomitant]
     Active Substance: GLUCAGON
  11. DEXTROSE [Concomitant]
     Active Substance: DEXTROSE
  12. KLOR-CON [Concomitant]
     Active Substance: POTASSIUM CHLORIDE
  13. LIDOCAINE\PRILOCAINE [Concomitant]
     Active Substance: LIDOCAINE\PRILOCAINE
  14. LORATADINE [Concomitant]
     Active Substance: LORATADINE
  15. MAXIPIME [Concomitant]
     Active Substance: CEFEPIME HYDROCHLORIDE
  16. MELATONIN [Concomitant]
     Active Substance: MELATONIN
  17. METOCLOPRAMIDE [Concomitant]
     Active Substance: METOCLOPRAMIDE
  18. MORPHINE SULFATE [Concomitant]
     Active Substance: MORPHINE SULFATE
  19. ONDANSETRON [Concomitant]
     Active Substance: ONDANSETRON
  20. OXYCODONE [Concomitant]
     Active Substance: OXYCODONE
  21. ROBITUSSIN (GUAIFENESIN) [Concomitant]
     Active Substance: GUAIFENESIN
  22. SENNA [Concomitant]
     Active Substance: SENNA LEAF\SENNOSIDES\SENNOSIDES A AND B

REACTIONS (1)
  - Death [None]

NARRATIVE: CASE EVENT DATE: 20221027
